FAERS Safety Report 4679352-3 (Version None)
Quarter: 2005Q2

REPORT INFORMATION
  Report Type: 
  Country: None (occurrence: None)
  Receive Date: 20050602
  Receipt Date: 20050517
  Transmission Date: 20051028
  Serious: Yes (Other)
  Sender: FDA-Public Use
  Company Number: CA-GLAXOSMITHKLINE-A0559216A

PATIENT
  Age: 49 Year
  Sex: Female
  Weight: 59.1 kg

DRUGS (9)
  1. IMITREX [Suspect]
     Indication: DRUG USE FOR UNKNOWN INDICATION
     Route: 048
     Dates: start: 20050311
  2. NEURONTIN [Concomitant]
     Dosage: 2000MG PER DAY
  3. ULTRADOL [Concomitant]
     Dosage: 300MG TWICE PER DAY
  4. MOGADON [Concomitant]
     Dosage: 10MG AT NIGHT
  5. ZOLOFT [Concomitant]
     Dosage: 100MG AT NIGHT
  6. SYNTHROID [Concomitant]
     Dosage: 125MCG PER DAY
  7. XANAX [Concomitant]
     Dosage: 1MG THREE TIMES PER DAY
  8. NOVO-GESIC [Concomitant]
  9. PHENERGAN [Concomitant]
     Dosage: 50MG AT NIGHT

REACTIONS (4)
  - ASTHENIA [None]
  - FALL [None]
  - HYPOAESTHESIA [None]
  - JOINT SPRAIN [None]
